FAERS Safety Report 12053939 (Version 2)
Quarter: 2018Q1

REPORT INFORMATION
  Report Type: Spontaneous
  Country: US (occurrence: US)
  Receive Date: 20160209
  Receipt Date: 20180201
  Transmission Date: 20180508
  Serious: No
  Sender: FDA-Public Use
  Company Number: US-SA-2016SA003146

PATIENT
  Age: 67 Year
  Sex: Female

DRUGS (5)
  1. TYLENOL [Concomitant]
     Active Substance: ACETAMINOPHEN
  2. PRALUENT [Suspect]
     Active Substance: ALIROCUMAB
     Indication: BLOOD CHOLESTEROL INCREASED
     Route: 058
     Dates: start: 20151217, end: 2017
  3. ALIROCUMAB PREFILLED PEN [Suspect]
     Active Substance: ALIROCUMAB
     Indication: BLOOD CHOLESTEROL INCREASED
     Dates: start: 20151217, end: 2017
  4. FISH OIL [Concomitant]
     Active Substance: FISH OIL
     Indication: ARTHRITIS
     Route: 065
  5. LIPITOR [Concomitant]
     Active Substance: ATORVASTATIN CALCIUM
     Route: 065
     Dates: end: 2017

REACTIONS (7)
  - Neck pain [Unknown]
  - Gait disturbance [Unknown]
  - Musculoskeletal pain [Not Recovered/Not Resolved]
  - Dry throat [Unknown]
  - Dyspnoea [Unknown]
  - Middle insomnia [Unknown]
  - Cough [Unknown]

NARRATIVE: CASE EVENT DATE: 201601
